FAERS Safety Report 4677709-8 (Version None)
Quarter: 2005Q2

REPORT INFORMATION
  Report Type: 
  Country: None (occurrence: None)
  Receive Date: 20050527
  Receipt Date: 20050520
  Transmission Date: 20051028
  Serious: Yes (Hospitalization)
  Sender: FDA-Public Use
  Company Number: GBWYE683920MAY05

PATIENT
  Age: 84 Year

DRUGS (11)
  1. ADVIL [Suspect]
     Indication: PAIN
     Dosage: 400 MG 3X PER 1 DAY, ORAL
     Route: 048
     Dates: start: 20050506, end: 20050510
  2. BENDROFLUAZIDE (BENDROFLUMETHIAZIDE, , 0) [Suspect]
     Indication: HYPERTENSION
     Dosage: 2.5 MG 1X PER 1 DAY, ORAL
     Route: 048
     Dates: end: 20050510
  3. FRUSEMIDE (FUROSEMIDE, , 0) [Suspect]
     Dosage: 40 MG 1X PER 1 DAY, ORAL
     Route: 048
     Dates: end: 20050510
  4. ASPIRIN [Concomitant]
  5. CALCICHEW (CALCIUM CARBONATE) [Concomitant]
  6. GABAPENTIN [Concomitant]
  7. LOFEPRAMINE (LOFEPRAMINE) [Concomitant]
  8. SALMETEROL (SALMETEROL) [Concomitant]
  9. BECLOMETHASONE DIPROPIONATE (BECLOMETASONE DIPROPIONATE) [Concomitant]
  10. LANSOPRAZOLE [Concomitant]
  11. BETAHISTINE (BETAHISTINE) [Concomitant]

REACTIONS (2)
  - DEHYDRATION [None]
  - RENAL FAILURE ACUTE [None]
